FAERS Safety Report 7666767-4 (Version None)
Quarter: 2011Q3

REPORT INFORMATION
  Report Type: 
  Country: None (occurrence: None)
  Receive Date: 20110806
  Receipt Date: 20110509
  Transmission Date: 20111222
  Serious: No
  Sender: FDA-Public Use
  Company Number: US-ABBOTT-11P-163-0725065-00

PATIENT
  Age: 60 Year
  Sex: Female

DRUGS (7)
  1. TYROSINT [Concomitant]
     Indication: AUTOIMMUNE THYROIDITIS
  2. SIMVASTATIN [Concomitant]
     Indication: BLOOD CHOLESTEROL INCREASED
  3. NIASPAN [Suspect]
     Indication: BLOOD CHOLESTEROL INCREASED
     Route: 048
     Dates: start: 20100901, end: 20100901
  4. CYTOMEL [Concomitant]
     Indication: AUTOIMMUNE THYROIDITIS
  5. IMITREX [Concomitant]
     Indication: MIGRAINE
  6. AMITRYPTILLINE [Concomitant]
     Indication: MIGRAINE
  7. CO Q-10 [Concomitant]
     Indication: MEDICAL DIET

REACTIONS (2)
  - GENERALISED ERYTHEMA [None]
  - FLUSHING [None]
